FAERS Safety Report 6463342-4 (Version None)
Quarter: 2009Q4

REPORT INFORMATION
  Report Type: 
  Country: None (occurrence: None)
  Receive Date: 20091130
  Receipt Date: 20090806
  Transmission Date: 20100525
  Serious: Yes (Other)
  Sender: FDA-Public Use
  Company Number: US-AMGEN-QUU359062

PATIENT
  Sex: Female

DRUGS (5)
  1. ENBREL [Suspect]
     Indication: DRUG USE FOR UNKNOWN INDICATION
  2. PLENDIL [Concomitant]
  3. HYDROCHLOROTHIAZIDE [Concomitant]
  4. ZYRTEC [Concomitant]
  5. TOPROL-XL [Concomitant]

REACTIONS (1)
  - DEPRESSION [None]
